FAERS Safety Report 5143911-4 (Version None)
Quarter: 2006Q4

REPORT INFORMATION
  Report Type: 
  Country: None (occurrence: None)
  Receive Date: 20061106
  Receipt Date: 20061102
  Transmission Date: 20070319
  Serious: Yes (Death)
  Sender: FDA-Public Use
  Company Number: 2006UW21493

PATIENT
  Age: 84 Year
  Sex: Female

DRUGS (1)
  1. FASLODEX [Suspect]
     Indication: METASTATIC NEOPLASM
     Route: 030
     Dates: start: 20061012, end: 20060101

REACTIONS (1)
  - DEATH [None]
